FAERS Safety Report 4282889-2 (Version None)
Quarter: 2004Q1

REPORT INFORMATION
  Report Type: 
  Country: None (occurrence: None)
  Receive Date: 20040130
  Receipt Date: 20030915
  Transmission Date: 20041129
  Serious: No
  Sender: FDA-Public Use
  Company Number: US-BRISTOL-MYERS SQUIBB COMPANY-12383634

PATIENT
  Age: 42 Year
  Sex: Male
  Weight: 73 kg

DRUGS (1)
  1. SERZONE [Suspect]
     Indication: DEPRESSION
     Dosage: 2 AND 1/2 TABLETS IN THE MORNING FOR ^ABOUT 4 TO 5 YEARS^
     Route: 048
     Dates: end: 20030911

REACTIONS (8)
  - CONSTIPATION [None]
  - FEELING COLD [None]
  - FLIGHT OF IDEAS [None]
  - LIBIDO DECREASED [None]
  - NASAL CONGESTION [None]
  - NAUSEA [None]
  - URETHRAL DISORDER [None]
  - URINARY HESITATION [None]
